FAERS Safety Report 20102874 (Version 1)
Quarter: 2021Q4

REPORT INFORMATION
  Report Type: Spontaneous
  Country: ES (occurrence: ES)
  Receive Date: 20211123
  Receipt Date: 20211123
  Transmission Date: 20220303
  Serious: Yes (Life-Threatening, Hospitalization)
  Sender: FDA-Public Use
  Company Number: None

PATIENT
  Age: 72 Year
  Sex: Male

DRUGS (4)
  1. QUETIAPINE [Suspect]
     Active Substance: QUETIAPINE
     Indication: Product used for unknown indication
     Dosage: 50 MG, TOTAL
     Route: 048
     Dates: start: 20210827
  2. CARVEDILOL [Suspect]
     Active Substance: CARVEDILOL
     Indication: Hepatic cirrhosis
     Dosage: 6.25 MG, QD
     Route: 048
     Dates: start: 20210831, end: 20210902
  3. SPIRONOLACTONE [Suspect]
     Active Substance: SPIRONOLACTONE
     Indication: Hepatic cirrhosis
     Dosage: 100 MG, QD
     Route: 048
     Dates: start: 20210831, end: 20210902
  4. SOMATOSTATIN [Concomitant]
     Active Substance: SOMATOSTATIN
     Indication: Hepatic cirrhosis
     Dosage: 6 MG, QD
     Route: 042
     Dates: start: 20210825, end: 20210831

REACTIONS (1)
  - Thrombocytopenia [Recovering/Resolving]

NARRATIVE: CASE EVENT DATE: 20210902
